FAERS Safety Report 9900001 (Version 1)
Quarter: 2014Q1

REPORT INFORMATION
  Report Type: Not Available
  Country: US (occurrence: US)
  Receive Date: 20140214
  Receipt Date: 20140214
  Transmission Date: 20141002
  Serious: No
  Sender: FDA-Public Use
  Company Number: US-VIVUS-2013V1000878

PATIENT
  Age: 55 Year
  Sex: Female
  Weight: 87.62 kg

DRUGS (15)
  1. QSYMIA 3.75MG/23MG [Suspect]
     Indication: WEIGHT DECREASED
     Route: 048
     Dates: start: 20131208
  2. METFORMIN [Concomitant]
     Indication: TYPE 2 DIABETES MELLITUS
     Route: 048
     Dates: start: 1998
  3. SIMVASTATIN [Concomitant]
     Indication: BLOOD CHOLESTEROL INCREASED
     Route: 048
     Dates: start: 2011
  4. BABY ASPIRIN [Concomitant]
     Indication: PROPHYLAXIS
     Route: 048
     Dates: start: 2010
  5. TRIAMT/HCTZ [Concomitant]
     Indication: HYPERTENSION
     Dosage: 37.5MG/25MG
     Route: 048
     Dates: start: 2013
  6. LANTUS INSULIN [Concomitant]
     Indication: TYPE 2 DIABETES MELLITUS
     Route: 058
     Dates: start: 2012
  7. APIDRA INSULIN [Concomitant]
     Indication: TYPE 2 DIABETES MELLITUS
     Route: 058
     Dates: start: 2012
  8. HYDROXYZINE HCL [Concomitant]
     Indication: LIP SWELLING
     Dosage: 1-4 TABLETS
     Route: 048
     Dates: start: 2012
  9. HYDROXYZINE HCL [Concomitant]
     Indication: OEDEMA
  10. LORATIDINE [Concomitant]
     Indication: LIP SWELLING
     Route: 048
     Dates: start: 2012
  11. LORATIDINE [Concomitant]
     Indication: OEDEMA
  12. BENADRYL [Concomitant]
     Indication: LIP SWELLING
     Route: 048
     Dates: start: 2012
  13. BENADRYL [Concomitant]
     Indication: OEDEMA
  14. PREDNISONE [Concomitant]
     Indication: LIP SWELLING
     Route: 048
     Dates: start: 2012
  15. PREDNISONE [Concomitant]
     Indication: OEDEMA

REACTIONS (1)
  - Swollen tongue [Not Recovered/Not Resolved]
